FAERS Safety Report 14740733 (Version 1)
Quarter: 2018Q2

REPORT INFORMATION
  Report Type: Spontaneous
  Country: US (occurrence: US)
  Receive Date: 20180410
  Receipt Date: 20180410
  Transmission Date: 20180711
  Serious: No
  Sender: FDA-Public Use
  Company Number: US-GLAXOSMITHKLINE-US2018055107

PATIENT
  Age: 40 Year
  Sex: Female
  Weight: 81 kg

DRUGS (1)
  1. EQUATE NICOTINE [Suspect]
     Active Substance: NICOTINE
     Indication: SMOKING CESSATION THERAPY
     Dosage: 21 MG, 1D
     Dates: start: 20180207, end: 20180212

REACTIONS (4)
  - Application site pain [Unknown]
  - Application site rash [Unknown]
  - Application site pruritus [Unknown]
  - Application site discharge [Unknown]

NARRATIVE: CASE EVENT DATE: 20180213
